FAERS Safety Report 18565273 (Version 1)
Quarter: 2020Q4

REPORT INFORMATION
  Report Type: Report from Study
  Country: IE (occurrence: IE)
  Receive Date: 20201201
  Receipt Date: 20201201
  Transmission Date: 20210114
  Serious: Yes (Other)
  Sender: FDA-Public Use
  Company Number: IE-MYLANLABS-2020M1098566

PATIENT
  Age: 47 Year
  Sex: Female

DRUGS (39)
  1. REPLAGAL [Suspect]
     Active Substance: AGALSIDASE ALFA
     Dosage: 17.5 MILLIGRAM, 1X/2WKS
     Route: 042
     Dates: start: 20200810
  2. REPLAGAL [Suspect]
     Active Substance: AGALSIDASE ALFA
     Dosage: 17.5 MILLIGRAM, 1X/2WKS
     Route: 042
     Dates: start: 20200505
  3. REPLAGAL [Suspect]
     Active Substance: AGALSIDASE ALFA
     Dosage: UNK
     Route: 065
     Dates: start: 20191203
  4. REPLAGAL [Suspect]
     Active Substance: AGALSIDASE ALFA
     Dosage: 17.5 MILLIGRAM, 1X/2WKS
     Route: 042
     Dates: start: 20200406
  5. REPLAGAL [Suspect]
     Active Substance: AGALSIDASE ALFA
     Dosage: 17.5 MILLIGRAM, 1X/2WKS
     Route: 042
     Dates: start: 20200727
  6. PRINOPRIL                          /00894001/ [Concomitant]
     Indication: PRODUCT USED FOR UNKNOWN INDICATION
     Dosage: 10 MILLIGRAM
     Route: 050
  7. MAGNESIUM OXIDE. [Concomitant]
     Active Substance: MAGNESIUM OXIDE
     Indication: PRODUCT USED FOR UNKNOWN INDICATION
     Dosage: 250 MILLIGRAM, 3X/DAY:TID
     Route: 050
  8. ARTHROTEC [Concomitant]
     Active Substance: DICLOFENAC SODIUM\MISOPROSTOL
     Indication: PRODUCT USED FOR UNKNOWN INDICATION
     Dosage: 75 MILLIGRAM, 2X/DAY:BID
     Route: 050
  9. IRON [Concomitant]
     Active Substance: IRON
     Indication: PRODUCT USED FOR UNKNOWN INDICATION
     Dosage: 17 MILLIGRAM, 1X/DAY:QD
     Route: 050
  10. NUPRIN                             /00109201/ [Concomitant]
     Indication: PRODUCT USED FOR UNKNOWN INDICATION
     Dosage: 75 MILLIGRAM
     Route: 050
  11. TRAMADOL. [Concomitant]
     Active Substance: TRAMADOL
     Indication: PRODUCT USED FOR UNKNOWN INDICATION
     Dosage: 100 MILLIGRAM, 3X/DAY:TID
     Route: 050
  12. REPLAGAL [Suspect]
     Active Substance: AGALSIDASE ALFA
     Dosage: 17.5 MILLIGRAM, 1X/2WKS
     Route: 042
     Dates: start: 20150428
  13. REPLAGAL [Suspect]
     Active Substance: AGALSIDASE ALFA
     Dosage: 17.5 MILLIGRAM, 1X/2WKS
     Route: 042
     Dates: start: 20191231
  14. NARATRIPTAN [Concomitant]
     Active Substance: NARATRIPTAN HYDROCHLORIDE
     Indication: PRODUCT USED FOR UNKNOWN INDICATION
     Dosage: 2.5 MILLIGRAM, AS REQUIRED
     Route: 050
  15. DIFLUCAN [Concomitant]
     Active Substance: FLUCONAZOLE
     Indication: PRODUCT USED FOR UNKNOWN INDICATION
     Dosage: 50 MILLIGRAM, 1X/DAY:QD
     Route: 050
  16. PROPRANOLOL [Suspect]
     Active Substance: PROPRANOLOL HYDROCHLORIDE
     Indication: PRODUCT USED FOR UNKNOWN INDICATION
     Dosage: UNK
     Route: 065
  17. REPLAGAL [Suspect]
     Active Substance: AGALSIDASE ALFA
     Dosage: 17.5 MILLIGRAM, 1X/2WKS
     Route: 042
     Dates: start: 20200224
  18. REPLAGAL [Suspect]
     Active Substance: AGALSIDASE ALFA
     Dosage: UNK
     Route: 065
     Dates: start: 20191119
  19. DYMISTA [Concomitant]
     Active Substance: AZELASTINE HYDROCHLORIDE\FLUTICASONE PROPIONATE
     Indication: PRODUCT USED FOR UNKNOWN INDICATION
     Dosage: UNK
  20. PARACETAMOL [Concomitant]
     Active Substance: ACETAMINOPHEN
     Indication: PRODUCT USED FOR UNKNOWN INDICATION
     Dosage: 1 GRAM, PRN (1 GRAM, AS REQUIRED)
  21. LIPITOR [Concomitant]
     Active Substance: ATORVASTATIN CALCIUM
     Indication: PRODUCT USED FOR UNKNOWN INDICATION
     Dosage: 20 MILLIGRAM, PM (20 MILLIGRAM; NIGHT)
  22. REPLAGAL [Suspect]
     Active Substance: AGALSIDASE ALFA
     Dosage: UNK UNK, 1X/2WKS
     Route: 042
     Dates: start: 20200211
  23. REPLAGAL [Suspect]
     Active Substance: AGALSIDASE ALFA
     Dosage: 17.5 MILLIGRAM, 1X/2WKS
     Route: 042
     Dates: start: 20200323
  24. REPLAGAL [Suspect]
     Active Substance: AGALSIDASE ALFA
     Dosage: UNK
     Route: 065
     Dates: start: 20190813
  25. REPLAGAL [Suspect]
     Active Substance: AGALSIDASE ALFA
     Dosage: UNK
     Route: 065
     Dates: start: 20130821
  26. CEFUROXIME. [Concomitant]
     Active Substance: CEFUROXIME
     Indication: PRODUCT USED FOR UNKNOWN INDICATION
     Dosage: 500 MILLIGRAM, 2X/DAY:BID
     Route: 050
  27. RIBOFLAVIN [Concomitant]
     Active Substance: RIBOFLAVIN
     Indication: PRODUCT USED FOR UNKNOWN INDICATION
     Dosage: 100 MILLIGRAM, 2X/DAY:BID
     Route: 050
  28. REPLAGAL [Suspect]
     Active Substance: AGALSIDASE ALFA
     Indication: FABRY^S DISEASE
     Dosage: 17.5 MILLIGRAM, 1X/2WKS
     Route: 042
     Dates: start: 20191216
  29. REPLAGAL [Suspect]
     Active Substance: AGALSIDASE ALFA
     Dosage: 17.5 MILLIGRAM, 1X/2WKS
     Route: 042
     Dates: start: 20191231
  30. REPLAGAL [Suspect]
     Active Substance: AGALSIDASE ALFA
     Dosage: 17.5 MILLIGRAM, 1X/2WKS
     Route: 042
     Dates: start: 20150428
  31. REPLAGAL [Suspect]
     Active Substance: AGALSIDASE ALFA
     Dosage: 17.5 MILLIGRAM, 1X/2WKS
     Route: 042
     Dates: start: 20200824
  32. REPLAGAL [Suspect]
     Active Substance: AGALSIDASE ALFA
     Dosage: 17.5 MILLIGRAM, 1X/2WKS
     Route: 042
     Dates: start: 20150428
  33. TEGRETOL [Concomitant]
     Active Substance: CARBAMAZEPINE
     Indication: PRODUCT USED FOR UNKNOWN INDICATION
     Dosage: 400 MILLIGRAM
     Route: 050
  34. FLUNARIZINE [Concomitant]
     Active Substance: FLUNARIZINE
     Indication: PRODUCT USED FOR UNKNOWN INDICATION
     Dosage: 5 MILLIGRAM, 1X/DAY:QD
     Route: 050
  35. PREDNISOLONE. [Concomitant]
     Active Substance: PREDNISOLONE
     Indication: PRODUCT USED FOR UNKNOWN INDICATION
     Dosage: 30 MILLIGRAM, 1X/DAY:QD
     Route: 050
  36. REPLAGAL [Suspect]
     Active Substance: AGALSIDASE ALFA
     Dosage: 17.5 MILLIGRAM, 1X/2WKS
     Route: 042
     Dates: start: 20200309
  37. REPLAGAL [Suspect]
     Active Substance: AGALSIDASE ALFA
     Dosage: 17.5 MILLIGRAM, 1X/2WKS
     Route: 042
     Dates: start: 20150428
  38. REPLAGAL [Suspect]
     Active Substance: AGALSIDASE ALFA
     Dosage: UNK
     Route: 065
     Dates: start: 20191008
  39. TEGRETOL [Concomitant]
     Active Substance: CARBAMAZEPINE
     Dosage: 300 MILLIGRAM
     Route: 050

REACTIONS (22)
  - Rhinitis [Recovered/Resolved]
  - Pain [Not Recovered/Not Resolved]
  - Headache [Not Recovered/Not Resolved]
  - Nausea [Recovered/Resolved]
  - Nasal congestion [Recovering/Resolving]
  - Condition aggravated [Not Recovered/Not Resolved]
  - Dizziness [Recovering/Resolving]
  - Syncope [Recovering/Resolving]
  - Neuralgia [Not Recovered/Not Resolved]
  - Hypertension [Not Recovered/Not Resolved]
  - Myalgia [Not Recovered/Not Resolved]
  - Somnolence [Not Recovered/Not Resolved]
  - Influenza like illness [Recovering/Resolving]
  - Flank pain [Recovered/Resolved]
  - Blood pressure diastolic increased [Not Recovered/Not Resolved]
  - Asthenia [Not Recovered/Not Resolved]
  - Hypoaesthesia [Not Recovered/Not Resolved]
  - Heart rate decreased [Not Recovered/Not Resolved]
  - Migraine [Not Recovered/Not Resolved]
  - Fatigue [Not Recovered/Not Resolved]
  - Cough [Recovering/Resolving]
  - Contusion [Unknown]

NARRATIVE: CASE EVENT DATE: 201905
